FAERS Safety Report 6098892-6 (Version None)
Quarter: 2009Q1

REPORT INFORMATION
  Report Type: 
  Country: None (occurrence: None)
  Receive Date: 20090302
  Receipt Date: 20090225
  Transmission Date: 20090719
  Serious: Yes (Other)
  Sender: FDA-Public Use
  Company Number: TW-ABBOTT-08P-153-0453676-00

PATIENT
  Sex: Female
  Weight: 45 kg

DRUGS (1)
  1. REDUCTIL 15MG [Suspect]
     Indication: OVERWEIGHT
     Route: 048
     Dates: start: 20080417, end: 20080510

REACTIONS (1)
  - ABORTION INDUCED [None]
